FAERS Safety Report 9280962 (Version 2)
Quarter: 2013Q3

REPORT INFORMATION
  Report Type: Spontaneous
  Country: US (occurrence: US)
  Receive Date: 20130509
  Receipt Date: 20130823
  Transmission Date: 20140515
  Serious: No
  Sender: FDA-Public Use
  Company Number: US-B.I. PHARMACEUTICALS,INC./RIDGEFIELD-2013-BI-12781BP

PATIENT
  Age: 70 Year
  Sex: Female
  Weight: 113 kg

DRUGS (13)
  1. SPIRIVA [Suspect]
     Indication: CHRONIC OBSTRUCTIVE PULMONARY DISEASE
     Dosage: 18 MCG
     Route: 048
     Dates: start: 201203
  2. SPIRIVA [Suspect]
     Dosage: 18 MCG
     Route: 055
     Dates: start: 201203
  3. VICTOZA [Concomitant]
     Indication: DIABETES MELLITUS
     Dosage: 1.8 MG
     Route: 058
     Dates: start: 2011
  4. LOSARTAN [Concomitant]
     Indication: HYPERTENSION
     Dosage: 100 MG
     Route: 048
     Dates: start: 2003
  5. BYSTOLIC [Concomitant]
     Indication: HYPERTENSION
     Dosage: 10 MG
     Route: 048
     Dates: start: 2003
  6. ZYRTEC [Concomitant]
     Indication: ASTHMA
     Dosage: 10 MG
     Route: 048
     Dates: start: 2004
  7. IPRATROPIUM [Concomitant]
     Indication: ASTHMA
     Route: 055
     Dates: start: 2004
  8. LEVOXYL [Concomitant]
     Indication: HYPOTHYROIDISM
     Dosage: 300 MCG
     Route: 048
     Dates: start: 2009
  9. SYMBICORT [Concomitant]
     Indication: ASTHMA
     Dosage: 4 PUF
     Route: 055
     Dates: start: 2006
  10. MAXAIR [Concomitant]
     Indication: ASTHMA
     Dosage: FORMULATION:INHALATION AEROSOL
     Route: 055
     Dates: start: 2004
  11. HYOSCYAMINE [Concomitant]
     Indication: ABDOMINAL PAIN
     Dates: start: 2011
  12. LANTUS [Concomitant]
     Indication: DIABETES MELLITUS
     Dosage: 200 U
     Route: 058
     Dates: start: 2011
  13. SINGULAIR [Concomitant]
     Indication: ASTHMA
     Dosage: 10 MG
     Route: 048
     Dates: start: 2005

REACTIONS (4)
  - Incorrect route of drug administration [Recovered/Resolved]
  - Fatigue [Not Recovered/Not Resolved]
  - Oxygen saturation decreased [Not Recovered/Not Resolved]
  - Apnoea [Not Recovered/Not Resolved]
